FAERS Safety Report 5914676-0 (Version None)
Quarter: 2008Q4

REPORT INFORMATION
  Report Type: 
  Country: None (occurrence: None)
  Receive Date: 20081010
  Receipt Date: 20080926
  Transmission Date: 20090506
  Serious: Yes (Hospitalization)
  Sender: FDA-Public Use
  Company Number: JP-JNJFOC-20070802269

PATIENT
  Sex: Female
  Weight: 46 kg

DRUGS (3)
  1. ORTHO-NOVUM 1/35-21 [Suspect]
     Indication: CONTRACEPTION
     Route: 048
  2. SG [Concomitant]
     Indication: HEADACHE
     Route: 048
  3. LOXOPROFEN [Concomitant]
     Indication: DYSMENORRHOEA
     Route: 048

REACTIONS (4)
  - ABNORMAL WITHDRAWAL BLEEDING [None]
  - MENTAL DISORDER [None]
  - SUICIDE ATTEMPT [None]
  - WEIGHT DECREASED [None]
